FAERS Safety Report 19212233 (Version 3)
Quarter: 2025Q1

REPORT INFORMATION
  Report Type: Spontaneous
  Country: DE (occurrence: DE)
  Receive Date: 20210504
  Receipt Date: 20250308
  Transmission Date: 20250409
  Serious: Yes (Other)
  Sender: TAKEDA
  Company Number: DE-BEH-2021130681

PATIENT

DRUGS (1)
  1. HUMAN IMMUNOGLOBULIN G [Suspect]
     Active Substance: HUMAN IMMUNOGLOBULIN G
     Indication: Segmented hyalinising vasculitis
     Dosage: UNK UNK, MONTHLY

REACTIONS (4)
  - Cardiovascular disorder [Unknown]
  - Dizziness [Unknown]
  - Nausea [Unknown]
  - Off label use [Unknown]
